FAERS Safety Report 22172496 (Version 1)
Quarter: 2023Q2

REPORT INFORMATION
  Report Type: Spontaneous
  Country: US (occurrence: None)
  Receive Date: 20230403
  Receipt Date: 20230403
  Transmission Date: 20230721
  Serious: Yes (Other)
  Sender: FDA-Public Use
  Company Number: None

PATIENT
  Age: 52 Year
  Sex: Female
  Weight: 63.9 kg

DRUGS (5)
  1. AIMOVIG [Suspect]
     Active Substance: ERENUMAB-AOOE
     Indication: Migraine
     Dates: start: 20230226
  2. OMEPRAZOLE [Concomitant]
     Active Substance: OMEPRAZOLE
  3. DEPAKOTE [Concomitant]
     Active Substance: DIVALPROEX SODIUM
  4. BOTOX [Concomitant]
     Active Substance: ONABOTULINUMTOXINA
  5. VITAMINS [Concomitant]
     Active Substance: VITAMINS

REACTIONS (2)
  - Pelvic pain [None]
  - Constipation [None]

NARRATIVE: CASE EVENT DATE: 20230402
